FAERS Safety Report 4877249-7 (Version None)
Quarter: 2006Q1

REPORT INFORMATION
  Report Type: 
  Country: None (occurrence: None)
  Receive Date: 20060106
  Receipt Date: 20051222
  Transmission Date: 20060701
  Serious: Yes (Hospitalization)
  Sender: FDA-Public Use
  Company Number: 2005JP002254

PATIENT
  Age: 7 Year
  Sex: Female
  Weight: 25 kg

DRUGS (18)
  1. PROGRAF [Suspect]
     Indication: BONE MARROW TRANSPLANT
     Dosage: SEE IMAGE
     Route: 041
     Dates: start: 20050215, end: 20050220
  2. PROGRAF [Suspect]
     Indication: BONE MARROW TRANSPLANT
     Dosage: SEE IMAGE
     Route: 041
     Dates: start: 20050221, end: 20050223
  3. PROGRAF [Suspect]
     Indication: BONE MARROW TRANSPLANT
     Dosage: SEE IMAGE
     Route: 041
     Dates: start: 20050224, end: 20050227
  4. PROGRAF [Suspect]
     Indication: BONE MARROW TRANSPLANT
     Dosage: SEE IMAGE
     Route: 041
     Dates: start: 20050228, end: 20050301
  5. METHOTREXATE [Concomitant]
  6. GAMMAGARD [Concomitant]
  7. FIRSTCIN (CEFOZOPRAN HYDROCHLORIDE) INJECTION [Concomitant]
  8. PRODIF (FOSFLUCONAZOLE) INJECTION [Concomitant]
  9. CARBENIN (BETAMIPRON, PANIPENEM) INJECTION [Concomitant]
  10. TOBRACIN (TOBRAMYCIN SULFATE) INJECTION [Concomitant]
  11. ALBUMIN    BEHRING  (ALBUMIN HUMAN) INJECTION [Concomitant]
  12. SOLITA-T1 INJECTION (GLUCOSE, SODIUM LACTATE, SODIUM CHLORIDE) INJECTI [Concomitant]
  13. FULCALIQ (MIXED AMINO ACID/CARBOHYDRATE/ELECTROLYTE/VITAMIN) INJECTION [Concomitant]
  14. URSO (URSODEOXYCHOLIC ACID) GRANULE [Concomitant]
  15. VANCOMYCIN (VANCOMYCIN) POWDER [Concomitant]
  16. POLYMYXIN B SULFATE (POLYMYXIN B SULFATE) POWDER [Concomitant]
  17. SOLU-MEDROL [Concomitant]
  18. LASIX (FUROSEMIDE) INJECTION [Concomitant]

REACTIONS (11)
  - BLOOD PH DECREASED [None]
  - CARDIAC FAILURE [None]
  - CARDIOMEGALY [None]
  - HYPOVENTILATION [None]
  - MYDRIASIS [None]
  - OXYGEN SATURATION DECREASED [None]
  - PCO2 INCREASED [None]
  - PLEURAL EFFUSION [None]
  - PULMONARY OEDEMA [None]
  - REVERSIBLE POSTERIOR LEUKOENCEPHALOPATHY SYNDROME [None]
  - WEIGHT INCREASED [None]
